FAERS Safety Report 5601126-7 (Version None)
Quarter: 2008Q1

REPORT INFORMATION
  Report Type: 
  Country: None (occurrence: None)
  Receive Date: 20080118
  Receipt Date: 20080108
  Transmission Date: 20080703
  Serious: Yes (Hospitalization, Other)
  Sender: FDA-Public Use
  Company Number: SPV1-2007-04797

PATIENT
  Age: 74 Year
  Sex: Male

DRUGS (15)
  1. 405 (LANTHANUM CARBONATE)(405 (LANTHANUM CARBONATE)) CHEWABLE TABLET [Suspect]
     Indication: HYPERPHOSPHATAEMIA
     Dosage: ORAL : 750 MG, ORAL : 1500 MG, ORAL
     Route: 048
     Dates: start: 20050329, end: 20050509
  2. 405 (LANTHANUM CARBONATE)(405 (LANTHANUM CARBONATE)) CHEWABLE TABLET [Suspect]
     Indication: HYPERPHOSPHATAEMIA
     Dosage: ORAL : 750 MG, ORAL : 1500 MG, ORAL
     Route: 048
     Dates: start: 20050510, end: 20050912
  3. 405 (LANTHANUM CARBONATE)(405 (LANTHANUM CARBONATE)) CHEWABLE TABLET [Suspect]
     Indication: HYPERPHOSPHATAEMIA
     Dosage: ORAL : 750 MG, ORAL : 1500 MG, ORAL
     Route: 048
     Dates: start: 20050913
  4. BAYASPIRIN (ACETYSALICYLIC ACID) [Concomitant]
  5. EYEDROITIN (CHONDROITIN SULFATE SODIUM) [Concomitant]
  6. MOHRUS YUTOKU (KETOPROFEN) [Concomitant]
  7. ROCALTROL [Concomitant]
  8. FAMOTIDINE [Concomitant]
  9. LENDORMIN DAINIPPO (BROTIZOLAM) [Concomitant]
  10. HEPARIN [Concomitant]
  11. EPOGIN (EPOETIN BETA) [Concomitant]
  12. SENNOSIDE (SENNOSIDE A+B) [Concomitant]
  13. ISOTONIC SOLUTIONS [Concomitant]
  14. FERRICON (CIDEFERRON) [Concomitant]
  15. KIDMIN (AMINO ACID NOS) [Concomitant]

REACTIONS (8)
  - BODY TEMPERATURE DECREASED [None]
  - CONSTIPATION [None]
  - CONTUSION [None]
  - HAEMORRHAGE SUBCUTANEOUS [None]
  - MUSCULAR WEAKNESS [None]
  - PLATELET COUNT DECREASED [None]
  - PYREXIA [None]
  - TREMOR [None]
